FAERS Safety Report 7815159-3 (Version None)
Quarter: 2011Q4

REPORT INFORMATION
  Report Type: 
  Country: None (occurrence: None)
  Receive Date: 20111014
  Receipt Date: 20111010
  Transmission Date: 20120403
  Serious: Yes (Death, Hospitalization)
  Sender: FDA-Public Use
  Company Number: BG-AMGEN-BGRCT2011052892

PATIENT
  Age: 77 Year
  Sex: Female

DRUGS (2)
  1. BLINDED DARBEPOETIN ALFA [Suspect]
     Indication: CARDIAC FAILURE
     Dates: start: 20070823, end: 20110629
  2. BLINDED PLACEBO [Suspect]
     Indication: CARDIAC FAILURE
     Dates: start: 20070823, end: 20110629

REACTIONS (1)
  - CARDIAC FAILURE [None]
